FAERS Safety Report 7648544-3 (Version None)
Quarter: 2011Q3

REPORT INFORMATION
  Report Type: 
  Country: None (occurrence: None)
  Receive Date: 20110801
  Receipt Date: 20110726
  Transmission Date: 20111222
  Serious: Yes (Other)
  Sender: FDA-Public Use
  Company Number: US-GILEAD-2011-0041891

PATIENT
  Weight: 2.077 kg

DRUGS (3)
  1. TRUVADA [Suspect]
     Indication: HIV INFECTION
     Route: 064
     Dates: start: 20110201, end: 20110701
  2. LOPINAVIR/RITONAVIR [Suspect]
     Indication: HIV INFECTION
     Route: 064
     Dates: start: 20090101, end: 20110701
  3. EPZICOM [Suspect]
     Indication: HIV INFECTION
     Route: 064
     Dates: end: 20110201

REACTIONS (1)
  - CONGENITAL CYSTIC KIDNEY DISEASE [None]
